FAERS Safety Report 6396514-8 (Version None)
Quarter: 2009Q4

REPORT INFORMATION
  Report Type: 
  Country: None (occurrence: None)
  Receive Date: 20091012
  Receipt Date: 20091001
  Transmission Date: 20100525
  Serious: Yes (Hospitalization, Other)
  Sender: FDA-Public Use
  Company Number: US-AMGEN-QUU367307

PATIENT
  Sex: Female

DRUGS (3)
  1. ENBREL [Suspect]
     Indication: RHEUMATOID ARTHRITIS
     Route: 058
     Dates: end: 20060101
  2. METHOTREXATE [Concomitant]
  3. REMICADE [Concomitant]

REACTIONS (8)
  - ARTHRALGIA [None]
  - DRUG TOXICITY [None]
  - HYPERSENSITIVITY [None]
  - JOINT SWELLING [None]
  - MEMORY IMPAIRMENT [None]
  - MULTIPLE SCLEROSIS [None]
  - RASH [None]
  - RESPIRATORY DISTRESS [None]
